FAERS Safety Report 7039800-0 (Version None)
Quarter: 2010Q4

REPORT INFORMATION
  Report Type: 
  Country: None (occurrence: None)
  Receive Date: 20101012
  Receipt Date: 20101007
  Transmission Date: 20110411
  Serious: Yes (Other)
  Sender: FDA-Public Use
  Company Number: US-MERCK-1010USA00829

PATIENT
  Sex: Female

DRUGS (2)
  1. IVEMEND [Suspect]
     Indication: CHEMOTHERAPY
     Route: 041
  2. IRINOTECAN HYDROCHLORIDE [Concomitant]
     Route: 065

REACTIONS (1)
  - CONVULSION [None]
